FAERS Safety Report 17457223 (Version 1)
Quarter: 2020Q1

REPORT INFORMATION
  Report Type: Report from Study
  Country: None (occurrence: US)
  Receive Date: 20200225
  Receipt Date: 20200225
  Transmission Date: 20200409
  Serious: Yes (Other)
  Sender: FDA-Public Use
  Company Number: US-ABBVIE-20P-163-3291173-00

PATIENT
  Sex: Male

DRUGS (1)
  1. RINVOQ [Suspect]
     Active Substance: UPADACITINIB
     Indication: ANKYLOSING SPONDYLITIS
     Route: 048

REACTIONS (7)
  - Drug ineffective [Unknown]
  - Staphylococcal bacteraemia [Unknown]
  - Femur fracture [Unknown]
  - Spinal fracture [Unknown]
  - Plasma cell myeloma [Unknown]
  - Fall [Unknown]
  - Sepsis [Unknown]
